FAERS Safety Report 8477974-5 (Version None)
Quarter: 2012Q2

REPORT INFORMATION
  Report Type: 
  Country: None (occurrence: None)
  Receive Date: 20120629
  Receipt Date: 20120618
  Transmission Date: 20120825
  Serious: Yes (Death)
  Sender: FDA-Public Use
  Company Number: KR-BRISTOL-MYERS SQUIBB COMPANY-15921752

PATIENT
  Age: 10 Year
  Sex: Female

DRUGS (3)
  1. METHOTREXATE [Suspect]
  2. ADRIAMYCIN PFS [Suspect]
  3. CISPLATIN [Suspect]

REACTIONS (1)
  - WERNICKE'S ENCEPHALOPATHY [None]
